FAERS Safety Report 7974817-0 (Version None)
Quarter: 2011Q4

REPORT INFORMATION
  Report Type: 
  Country: None (occurrence: None)
  Receive Date: 20111213
  Receipt Date: 20111207
  Transmission Date: 20120403
  Serious: Yes (Hospitalization, Disabling, Other)
  Sender: FDA-Public Use
  Company Number: PHEH2009US16948

PATIENT
  Sex: Male
  Weight: 92.971 kg

DRUGS (39)
  1. ASPIRIN [Concomitant]
  2. SALSALATE [Concomitant]
  3. OMEPRAZOLE [Concomitant]
  4. GABAPENTIN [Concomitant]
  5. SULFASALAZINE [Concomitant]
     Dosage: 500 MG, BID
     Route: 048
  6. XANAX [Concomitant]
     Dosage: 0.5 MG, TID
  7. POTASSIUM CHLORIDE [Concomitant]
     Dosage: 20 MEQ, UNK
  8. COREG [Concomitant]
  9. PROTONIX [Concomitant]
  10. NEURONTIN [Concomitant]
  11. AUGMENTIN [Concomitant]
  12. ZOMETA [Suspect]
     Indication: MULTIPLE MYELOMA
     Dosage: 4 MG, QW3
     Dates: start: 20040301, end: 20060501
  13. CALCIUM [Concomitant]
  14. IRON [Concomitant]
  15. ZOFRAN [Concomitant]
  16. COLACE [Concomitant]
  17. PROMETHAZINE [Concomitant]
  18. CYPROHEPTADINE HCL [Concomitant]
  19. POTASSIUM CHLORIDE [Concomitant]
  20. LORAZEPAM [Concomitant]
  21. PERCOCET [Concomitant]
  22. CELEXA [Concomitant]
     Dosage: 20 MG, BID
  23. DECADRON [Concomitant]
  24. COUMADIN [Concomitant]
  25. MULTI-VITAMIN [Concomitant]
  26. REVLIMID [Concomitant]
  27. ARANESP [Concomitant]
  28. PHENERGAN [Concomitant]
     Dosage: 25 MG, PRN
  29. FLONASE [Concomitant]
  30. THALIDOMIDE [Concomitant]
  31. VELCADE [Concomitant]
  32. OXYCODONE HCL [Concomitant]
  33. LASIX [Concomitant]
  34. SULFADIAZINE [Concomitant]
  35. ATIVAN [Concomitant]
     Dosage: 1 MG, BID
  36. PLAQUENIL [Concomitant]
     Dosage: 200 MG, QD
  37. PROCRIT [Concomitant]
  38. DULCOLAX [Concomitant]
  39. LACTOBACILLUS [Concomitant]

REACTIONS (85)
  - ERYTHEMA [None]
  - INTERVERTEBRAL DISC DEGENERATION [None]
  - CARDIOMYOPATHY [None]
  - LEFT VENTRICULAR DYSFUNCTION [None]
  - VENTRICULAR HYPOKINESIA [None]
  - ARTHRALGIA [None]
  - CONSTIPATION [None]
  - HYPOTENSION [None]
  - NEUTROPENIA [None]
  - ORAL PAIN [None]
  - CONFUSIONAL STATE [None]
  - VASCULAR COMPRESSION [None]
  - BONE LOSS [None]
  - STAPHYLOCOCCAL INFECTION [None]
  - PRIMARY SEQUESTRUM [None]
  - ACTIVITIES OF DAILY LIVING IMPAIRED [None]
  - PAIN [None]
  - ANXIETY [None]
  - OSTEOMYELITIS [None]
  - ARTHRITIS [None]
  - DEPRESSION [None]
  - CORONARY ARTERY DISEASE [None]
  - LOCAL SWELLING [None]
  - ORAL CAVITY FISTULA [None]
  - EAR DISORDER [None]
  - PNEUMONIA [None]
  - INJURY [None]
  - THROMBOCYTOPENIA [None]
  - DECREASED APPETITE [None]
  - SUPERIOR VENA CAVA SYNDROME [None]
  - CHONDROMALACIA [None]
  - ANHEDONIA [None]
  - SLEEP APNOEA SYNDROME [None]
  - SKIN CANCER [None]
  - INFECTION [None]
  - HYPOAESTHESIA [None]
  - FATIGUE [None]
  - DEAFNESS [None]
  - BREATH ODOUR [None]
  - ACCIDENT [None]
  - TENDON RUPTURE [None]
  - SQUAMOUS CELL CARCINOMA [None]
  - NEOPLASM MALIGNANT [None]
  - SEBORRHOEIC DERMATITIS [None]
  - MYALGIA [None]
  - OSTEOPENIA [None]
  - DIPLOPIA [None]
  - HEADACHE [None]
  - RHEUMATOID ARTHRITIS [None]
  - ANAEMIA [None]
  - MASTICATION DISORDER [None]
  - PARAPROTEINAEMIA [None]
  - PULMONARY GRANULOMA [None]
  - MUSCULOSKELETAL PAIN [None]
  - TENOSYNOVITIS [None]
  - ASTHENIA [None]
  - MULTIPLE MYELOMA [None]
  - LEUKOPENIA [None]
  - DEEP VEIN THROMBOSIS [None]
  - EXPOSED BONE IN JAW [None]
  - JOINT DISLOCATION [None]
  - LYMPHADENOPATHY [None]
  - SKIN LESION [None]
  - OEDEMA PERIPHERAL [None]
  - DYSPNOEA EXERTIONAL [None]
  - OSTEONECROSIS OF JAW [None]
  - GASTROOESOPHAGEAL REFLUX DISEASE [None]
  - OVERWEIGHT [None]
  - ROTATOR CUFF SYNDROME [None]
  - DENTAL CARIES [None]
  - PLEURAL EFFUSION [None]
  - CELLULITIS [None]
  - OEDEMA [None]
  - HYPOKALAEMIA [None]
  - NEUROPATHY PERIPHERAL [None]
  - SPINAL OSTEOARTHRITIS [None]
  - TINNITUS [None]
  - DIARRHOEA [None]
  - HYPONATRAEMIA [None]
  - CARDIAC FAILURE CONGESTIVE [None]
  - SWELLING FACE [None]
  - SKELETAL INJURY [None]
  - MENISCUS LESION [None]
  - BURSITIS [None]
  - BONE MARROW OEDEMA [None]
